FAERS Safety Report 6692550-2 (Version None)
Quarter: 2010Q2

REPORT INFORMATION
  Report Type: 
  Country: None (occurrence: None)
  Receive Date: 20100419
  Receipt Date: 20100415
  Transmission Date: 20101027
  Serious: Yes (Life-Threatening, Hospitalization, Disabling)
  Sender: FDA-Public Use
  Company Number: 2010SP001671

PATIENT
  Sex: Female
  Weight: 74 kg

DRUGS (5)
  1. TEMODAL [Suspect]
     Indication: DRUG USE FOR UNKNOWN INDICATION
     Dosage: PO ; 185 MG;QD;PO
     Route: 048
     Dates: start: 20080612
  2. TEMODAL [Suspect]
     Indication: DRUG USE FOR UNKNOWN INDICATION
     Dosage: PO ; 185 MG;QD;PO
     Route: 048
     Dates: start: 20080812
  3. TEMODAL [Suspect]
     Indication: DRUG USE FOR UNKNOWN INDICATION
     Dosage: PO ; 185 MG;QD;PO
     Route: 048
     Dates: start: 20090521
  4. TEMODAL [Suspect]
  5. TEMODAL [Suspect]

REACTIONS (5)
  - BRAIN STEM ISCHAEMIA [None]
  - ENCEPHALITIS HERPES [None]
  - HERPES ZOSTER [None]
  - MENINGITIS HERPES [None]
  - SKIN EXFOLIATION [None]
